FAERS Safety Report 7420919-7 (Version None)
Quarter: 2011Q2

REPORT INFORMATION
  Report Type: 
  Country: None (occurrence: None)
  Receive Date: 20110408
  Receipt Date: 20110324
  Transmission Date: 20111010
  Serious: Yes (Death)
  Sender: FDA-Public Use
  Company Number: 2010005406

PATIENT
  Age: 72 Year
  Sex: Male
  Weight: 46 kg

DRUGS (13)
  1. PREDNISOLONE [Concomitant]
  2. URSODIOL (URODEOXYCHOLIC ACID) [Concomitant]
  3. MUCOSTA (REBAMIPIDE) [Concomitant]
  4. TIENAM [Concomitant]
  5. LOXONIN (LOXOPROFEN SODIUM) [Concomitant]
  6. DECADRON [Concomitant]
  7. ERLOTINIB (ERLOTINIB) (TABLET) (ERLOTINIB) [Suspect]
     Indication: LUNG SQUAMOUS CELL CARCINOMA STAGE UNSPECIFIED
     Dosage: 150 MG, 150 MG 1 X PER 1 DAY, ORAL
     Route: 048
     Dates: start: 20090917, end: 20091104
  8. MUCOTRON (CARBOCISTEINE) [Concomitant]
  9. BIOFERMIN [Concomitant]
  10. METHYCOBAL (MECOBALAMIN) [Concomitant]
  11. CODEINE PHOSPHATE [Concomitant]
  12. FAMOTIDINE [Concomitant]
  13. MUCOSOLVAN (AMBROXOL HYDROCHLORIDE) [Concomitant]

REACTIONS (3)
  - PNEUMONIA [None]
  - HAEMOPTYSIS [None]
  - NEOPLASM MALIGNANT [None]
